FAERS Safety Report 6899645-9 (Version None)
Quarter: 2010Q3

REPORT INFORMATION
  Report Type: 
  Country: None (occurrence: None)
  Receive Date: 20100708
  Receipt Date: 20090708
  Transmission Date: 20110219
  Serious: Yes (Other)
  Sender: FDA-Public Use
  Company Number: 2009237601

PATIENT
  Age: 40 Year
  Sex: Female
  Weight: 56.7 kg

DRUGS (4)
  1. CHANTIX [Suspect]
     Indication: SMOKING CESSATION THERAPY
     Dosage: 1 MG, 2X/DAY, ORAL
     Route: 048
     Dates: start: 20090501, end: 20090630
  2. AMBIEN [Suspect]
     Indication: INSOMNIA
     Dosage: 12.5 MG, 1X/DAY; AS NEEDED
  3. VALIUM [Concomitant]
  4. VITAMINS [Concomitant]

REACTIONS (15)
  - ACCIDENTAL OVERDOSE [None]
  - AGITATION [None]
  - AMNESIA [None]
  - ANGER [None]
  - ANXIETY [None]
  - APATHY [None]
  - CHEILITIS [None]
  - CONFUSIONAL STATE [None]
  - DEPRESSION [None]
  - DISTURBANCE IN ATTENTION [None]
  - HOSTILITY [None]
  - LIP SWELLING [None]
  - MENTAL DISORDER [None]
  - NERVOUS SYSTEM DISORDER [None]
  - SUICIDAL IDEATION [None]
